FAERS Safety Report 21091933 (Version 16)
Quarter: 2023Q2

REPORT INFORMATION
  Report Type: Report from Study
  Country: US (occurrence: US)
  Receive Date: 20220717
  Receipt Date: 20230630
  Transmission Date: 20230722
  Serious: Yes (Other)
  Sender: FDA-Public Use
  Company Number: US-NOVARTISTESTPH-NVSC2022US161850

PATIENT
  Sex: Female

DRUGS (11)
  1. PIQRAY [Suspect]
     Active Substance: ALPELISIB
     Indication: Breast cancer
     Dosage: 300 MG, QD
     Route: 048
     Dates: start: 202201
  2. PIQRAY [Suspect]
     Active Substance: ALPELISIB
     Dosage: 300 MG, QD
     Route: 065
  3. PIQRAY [Suspect]
     Active Substance: ALPELISIB
     Dosage: 300 MG, QD
     Route: 048
  4. PIQRAY [Suspect]
     Active Substance: ALPELISIB
     Dosage: 300 MG, QD
     Route: 065
  5. FULVESTRANT [Suspect]
     Active Substance: FULVESTRANT
     Indication: Breast cancer
     Dosage: UNK
     Route: 065
  6. ACYCLOVIR [Concomitant]
     Active Substance: ACYCLOVIR
     Indication: Product used for unknown indication
     Dosage: UNK
     Route: 065
  7. TUMS [Concomitant]
     Active Substance: CALCIUM CARBONATE
     Indication: Product used for unknown indication
     Dosage: UNK
     Route: 065
  8. CHOLESTEROL [Concomitant]
     Active Substance: CHOLESTEROL
     Indication: Product used for unknown indication
     Dosage: UNK
     Route: 065
  9. BENADRYL [Concomitant]
     Active Substance: DIPHENHYDRAMINE HYDROCHLORIDE
     Indication: Product used for unknown indication
     Dosage: UNK
     Route: 065
  10. ROSUVASTATIN [Concomitant]
     Active Substance: ROSUVASTATIN
     Indication: Product used for unknown indication
     Dosage: UNK
     Route: 065
  11. ACYCLOVIR [Concomitant]
     Active Substance: ACYCLOVIR
     Indication: Product used for unknown indication
     Dosage: UNK
     Route: 065

REACTIONS (25)
  - Shock symptom [Unknown]
  - Alopecia [Unknown]
  - Oral herpes [Unknown]
  - Rash vesicular [Recovered/Resolved]
  - Scab [Unknown]
  - Memory impairment [Unknown]
  - Swollen tongue [Unknown]
  - Thirst [Unknown]
  - Micturition disorder [Unknown]
  - Dysphonia [Unknown]
  - Taste disorder [Unknown]
  - Oral mucosal blistering [Unknown]
  - Dry mouth [Unknown]
  - Decreased appetite [Unknown]
  - Skin disorder [Unknown]
  - Feeling abnormal [Unknown]
  - Fatigue [Unknown]
  - Arthritis [Unknown]
  - Hypersensitivity [Unknown]
  - Insomnia [Unknown]
  - Rash [Unknown]
  - Asthenia [Unknown]
  - Urinary tract infection [Unknown]
  - Pruritus [Unknown]
  - Product outer packaging issue [Unknown]
